FAERS Safety Report 4722584-6 (Version None)
Quarter: 2005Q3

REPORT INFORMATION
  Report Type: 
  Country: None (occurrence: None)
  Receive Date: 20050720
  Receipt Date: 20050712
  Transmission Date: 20060218
  Serious: Yes (Hospitalization, Other)
  Sender: FDA-Public Use
  Company Number: 2005075018

PATIENT
  Age: 48 Year
  Sex: Female

DRUGS (1)
  1. DOSTINEX [Suspect]
     Indication: HYPERPROLACTINAEMIA
     Dosage: 0.5 MG, WEEKLY, ORAL
     Route: 048
     Dates: start: 20020117, end: 20020901

REACTIONS (5)
  - CONSTIPATION [None]
  - DEPRESSION [None]
  - HERNIA [None]
  - PAIN IN EXTREMITY [None]
  - UTERINE LEIOMYOMA [None]
